FAERS Safety Report 5698888-X (Version None)
Quarter: 2008Q2

REPORT INFORMATION
  Report Type: 
  Country: None (occurrence: None)
  Receive Date: 20080408
  Receipt Date: 20060802
  Transmission Date: 20081010
  Serious: No
  Sender: FDA-Public Use
  Company Number: US-BAYER-US-2006-020424

PATIENT
  Age: 58 Year
  Sex: Female
  Weight: 88 kg

DRUGS (6)
  1. ULTRAVIST (PHARMACY BULK) [Suspect]
     Indication: COMPUTERISED TOMOGRAM ABDOMEN
     Dosage: UNIT DOSE: 100 ML
     Route: 042
     Dates: start: 20060725, end: 20060725
  2. PLAVIX [Concomitant]
  3. ATENOLOL [Concomitant]
  4. ASPIRIN [Concomitant]
  5. LASIX [Concomitant]
  6. READI-CAT [Concomitant]

REACTIONS (3)
  - LYMPH NODE PAIN [None]
  - LYMPHADENOPATHY [None]
  - URTICARIA [None]
